FAERS Safety Report 21812694 (Version 1)
Quarter: 2023Q1

REPORT INFORMATION
  Report Type: Spontaneous
  Country: DE (occurrence: DE)
  Receive Date: 20230103
  Receipt Date: 20230103
  Transmission Date: 20230417
  Serious: Yes (Life-Threatening)
  Sender: FDA-Public Use
  Company Number: DE-DCGMA-22197768

PATIENT
  Age: 75 Year
  Sex: Male
  Weight: 88 kg

DRUGS (7)
  1. TRANEXAMIC ACID [Suspect]
     Active Substance: TRANEXAMIC ACID
  2. NOVALGIN (METAMIZOLE SODIUM) [Suspect]
     Active Substance: METAMIZOLE SODIUM
     Indication: Analgesic therapy
     Route: 042
  3. NOVALGIN (METAMIZOLE SODIUM) [Suspect]
     Active Substance: METAMIZOLE SODIUM
     Dosage: 250 MG
     Route: 042
  4. CEFUROXIME [Concomitant]
     Active Substance: CEFUROXIME
  5. PROPOFOL [Concomitant]
     Active Substance: PROPOFOL
  6. PIRITRAMIDE [Concomitant]
     Active Substance: PIRITRAMIDE
  7. REMIFENTANIL [Concomitant]
     Active Substance: REMIFENTANIL

REACTIONS (2)
  - Anaphylactic shock [Recovered/Resolved]
  - Rash maculo-papular [Recovered/Resolved]

NARRATIVE: CASE EVENT DATE: 20220325
